FAERS Safety Report 12876871 (Version 1)
Quarter: 2016Q4

REPORT INFORMATION
  Report Type: Spontaneous
  Country: IR (occurrence: IR)
  Receive Date: 20161024
  Receipt Date: 20161024
  Transmission Date: 20170207
  Serious: Yes (Death, Hospitalization)
  Sender: FDA-Public Use
  Company Number: IR-GLAXOSMITHKLINE-IR2016155455

PATIENT
  Age: 54 Year
  Sex: Male

DRUGS (10)
  1. AZATHIOPRINE. [Suspect]
     Active Substance: AZATHIOPRINE
  2. PREDNISOLONE. [Suspect]
     Active Substance: PREDNISOLONE
  3. AMIKACIN [Suspect]
     Active Substance: AMIKACIN
  4. MEROPENEM. [Suspect]
     Active Substance: MEROPENEM
  5. OMEPRAZOLE. [Suspect]
     Active Substance: OMEPRAZOLE
  6. AMPICILLIN [Suspect]
     Active Substance: AMPICILLIN
  7. ACICLOVIR [Suspect]
     Active Substance: ACYCLOVIR
     Indication: ANTIVIRAL TREATMENT
     Route: 042
  8. ABACIN [Suspect]
     Active Substance: SULFAMETHOXAZOLE\TRIMETHOPRIM
  9. EPINEPHRINE. [Suspect]
     Active Substance: EPINEPHRINE
  10. INSULIN [Concomitant]
     Active Substance: INSULIN NOS
     Indication: DIABETES MELLITUS

REACTIONS (1)
  - Strongyloidiasis [Fatal]
